FAERS Safety Report 12460701 (Version 1)
Quarter: 2016Q2

REPORT INFORMATION
  Report Type: Spontaneous
  Country: RO (occurrence: RO)
  Receive Date: 20160613
  Receipt Date: 20160613
  Transmission Date: 20160815
  Serious: Yes (Other)
  Sender: FDA-Public Use
  Company Number: RO-PFIZER INC-2016292759

PATIENT

DRUGS (1)
  1. SUTENT [Suspect]
     Active Substance: SUNITINIB MALATE
     Indication: NEOPLASM MALIGNANT
     Dosage: 50 MG, CYCLIC (1X/DAY, 4 WEEKS ON/2 WEEKS OFF)

REACTIONS (3)
  - Neoplasm malignant [Unknown]
  - Disease progression [Unknown]
  - Pericarditis [Unknown]
